FAERS Safety Report 7771478-0 (Version None)
Quarter: 2011Q3

REPORT INFORMATION
  Report Type: 
  Country: None (occurrence: None)
  Receive Date: 20110922
  Receipt Date: 20110216
  Transmission Date: 20111222
  Serious: No
  Sender: FDA-Public Use
  Company Number: US-ASTRAZENECA-2011SE00961

PATIENT
  Age: 48 Year
  Sex: Male
  Weight: 88.5 kg

DRUGS (4)
  1. SEROQUEL [Suspect]
     Indication: PSYCHOTIC DISORDER
     Route: 048
     Dates: start: 20090101
  2. SEROQUEL [Suspect]
     Indication: BIPOLAR DISORDER
     Route: 048
     Dates: start: 20090101
  3. MS CONTIN [Concomitant]
  4. PRISTIQ [Concomitant]

REACTIONS (2)
  - DRUG DOSE OMISSION [None]
  - INSOMNIA [None]
